FAERS Safety Report 24542923 (Version 2)
Quarter: 2024Q4

REPORT INFORMATION
  Report Type: Spontaneous
  Country: GB (occurrence: GB)
  Receive Date: 20241024
  Receipt Date: 20241028
  Transmission Date: 20250114
  Serious: Yes (Hospitalization, Other)
  Sender: PFIZER
  Company Number: GB-002147023-NVSC2024GB129215

PATIENT
  Age: 86 Year
  Sex: Female

DRUGS (6)
  1. METHOTREXATE SODIUM [Suspect]
     Active Substance: METHOTREXATE SODIUM
     Dosage: 10 MG, QW (FIRST INJECTIONS OF METHOTREXATE 10 MG PFP WEEKLY)
  2. COSENTYX [Suspect]
     Active Substance: SECUKINUMAB
     Indication: Psoriatic arthropathy
     Dosage: 150 MG, QW  (2 PRE-FILLED DISPOSABLE INJECTION)
     Route: 058
  3. COSENTYX [Suspect]
     Active Substance: SECUKINUMAB
     Dosage: UNK
  4. COSENTYX [Suspect]
     Active Substance: SECUKINUMAB
     Dosage: FREQ:2 WK;150 MG, Q2W
     Route: 058
  5. COSENTYX [Suspect]
     Active Substance: SECUKINUMAB
     Dosage: UNK
  6. COSENTYX [Suspect]
     Active Substance: SECUKINUMAB
     Dosage: 150 MG EOW
     Route: 058

REACTIONS (9)
  - Lower respiratory tract infection [Unknown]
  - Dyspnoea [Unknown]
  - Cellulitis [Unknown]
  - Stasis dermatitis [Unknown]
  - Blood test abnormal [Unknown]
  - Malaise [Unknown]
  - Infection [Unknown]
  - Peripheral swelling [Unknown]
  - Localised infection [Unknown]
